FAERS Safety Report 8328264-2 (Version None)
Quarter: 2012Q2

REPORT INFORMATION
  Report Type: 
  Country: None (occurrence: None)
  Receive Date: 20120502
  Receipt Date: 20120424
  Transmission Date: 20120825
  Serious: Yes (Other)
  Sender: FDA-Public Use
  Company Number: JP-ASTELLAS-2011JP005424

PATIENT
  Age: 18 Year
  Sex: Male

DRUGS (5)
  1. CYCLOPHOSPHAMIDE [Concomitant]
     Indication: IMMUNOSUPPRESSANT DRUG THERAPY
     Route: 065
  2. DACLIZUMAB [Concomitant]
     Indication: IMMUNOSUPPRESSANT DRUG THERAPY
     Route: 065
  3. PROGRAF [Suspect]
     Indication: IMMUNOSUPPRESSANT DRUG THERAPY
     Route: 065
  4. PROGRAF [Suspect]
     Route: 065
  5. STEROID [Concomitant]
     Indication: IMMUNOSUPPRESSANT DRUG THERAPY
     Route: 065

REACTIONS (6)
  - INTESTINE TRANSPLANT REJECTION [None]
  - PERITONITIS BACTERIAL [None]
  - PNEUMONIA FUNGAL [None]
  - HEPATIC FAILURE [None]
  - DRUG INEFFECTIVE [None]
  - CYTOMEGALOVIRUS INFECTION [None]
